FAERS Safety Report 23369904 (Version 1)
Quarter: 2024Q1

REPORT INFORMATION
  Report Type: Spontaneous
  Country: US (occurrence: None)
  Receive Date: 20240104
  Receipt Date: 20240104
  Transmission Date: 20240409
  Serious: Yes (Death)
  Sender: FDA-Public Use
  Company Number: None

PATIENT
  Age: 74 Year
  Sex: Female

DRUGS (1)
  1. IBRANCE [Suspect]
     Active Substance: PALBOCICLIB
     Indication: Breast cancer female
     Dosage: 100MG ORAL??TAKE ONE CAPSULE BY MOUTH DAILY WITH FOOD FOR 21 DAYS OF A 28 DAY CYCLE. ?
     Route: 048
     Dates: start: 202209

REACTIONS (1)
  - Death [None]

NARRATIVE: CASE EVENT DATE: 20240104
